FAERS Safety Report 9007421 (Version 1)
Quarter: 2013Q1

REPORT INFORMATION
  Report Type: Spontaneous
  Country: US (occurrence: US)
  Receive Date: 20130110
  Receipt Date: 20130110
  Transmission Date: 20140127
  Serious: Yes (Hospitalization)
  Sender: FDA-Public Use
  Company Number: US-009507513-1301USA003070

PATIENT
  Sex: Female

DRUGS (5)
  1. SINGULAIR [Suspect]
     Route: 048
  2. ADVAIR [Suspect]
     Dosage: 1 DF, BID
     Route: 055
  3. LOVASTATIN [Concomitant]
  4. VERAPAMIL [Concomitant]
  5. LISINOPRIL [Concomitant]

REACTIONS (5)
  - Weight increased [Unknown]
  - Vitreous floaters [Unknown]
  - Throat irritation [Unknown]
  - Oropharyngeal pain [Unknown]
  - Dyspnoea [Unknown]
